FAERS Safety Report 21943889 (Version 1)
Quarter: 2023Q1

REPORT INFORMATION
  Report Type: Report from Study
  Country: US (occurrence: US)
  Receive Date: 20230202
  Receipt Date: 20230202
  Transmission Date: 20230417
  Serious: Yes (Hospitalization, Other)
  Sender: FDA-Public Use
  Company Number: US-ABBVIE-4291920

PATIENT
  Sex: Male

DRUGS (1)
  1. VENCLEXTA [Suspect]
     Active Substance: VENETOCLAX
     Indication: Acute myeloid leukaemia
     Route: 048
     Dates: start: 20221024

REACTIONS (5)
  - Cellulitis [Unknown]
  - Thrombosis [Unknown]
  - Lower limb fracture [Unknown]
  - Loss of consciousness [Unknown]
  - Oxygen saturation decreased [Unknown]
